FAERS Safety Report 7580282-8 (Version None)
Quarter: 2011Q2

REPORT INFORMATION
  Report Type: 
  Country: None (occurrence: None)
  Receive Date: 20110629
  Receipt Date: 20110623
  Transmission Date: 20111010
  Serious: Yes (Death, Other)
  Sender: FDA-Public Use
  Company Number: IT-ROXANE LABORATORIES, INC.-2011-RO-00884RO

PATIENT
  Age: 78 Year
  Sex: Male

DRUGS (2)
  1. CYCLOPHOSPHAMIDE [Suspect]
     Indication: CHRONIC LYMPHOCYTIC LEUKAEMIA
  2. PREDNISONE [Suspect]
     Indication: CHRONIC LYMPHOCYTIC LEUKAEMIA

REACTIONS (3)
  - RENAL IMPAIRMENT [None]
  - PROGRESSIVE MULTIFOCAL LEUKOENCEPHALOPATHY [None]
  - BLOOD OSMOLARITY INCREASED [None]
